FAERS Safety Report 10252735 (Version 1)
Quarter: 2014Q2

REPORT INFORMATION
  Report Type: Spontaneous
  Country: US (occurrence: None)
  Receive Date: 20140619
  Receipt Date: 20140619
  Transmission Date: 20141212
  Serious: Yes (Other)
  Sender: FDA-Public Use
  Company Number: None

PATIENT
  Age: 40 Year
  Sex: Female
  Weight: 86.64 kg

DRUGS (2)
  1. GENERIC LEVOTHYROXINE [Suspect]
     Indication: HYPOTHYROIDISM
     Route: 048
     Dates: start: 2002
  2. GENERIC LEVOTHYROXINE [Suspect]
     Indication: BASEDOW^S DISEASE
     Route: 048
     Dates: start: 2002

REACTIONS (2)
  - Fatigue [None]
  - Product substitution issue [None]
